FAERS Safety Report 9932431 (Version 1)
Quarter: 2014Q1

REPORT INFORMATION
  Report Type: Spontaneous
  Country: US (occurrence: US)
  Receive Date: 20140228
  Receipt Date: 20140228
  Transmission Date: 20141002
  Serious: No
  Sender: FDA-Public Use
  Company Number: US-GLAXOSMITHKLINE-A1014401A

PATIENT
  Age: 35 Year
  Sex: Male

DRUGS (4)
  1. LAMICTAL [Suspect]
     Indication: BIPOLAR DISORDER
     Dosage: 300MG PER DAY
     Route: 048
     Dates: start: 201207
  2. LATUDA [Concomitant]
  3. METFORMIN [Concomitant]
  4. MEDICATION FOR HIGH BLOOD PRESSURE [Concomitant]

REACTIONS (5)
  - Red blood cell count decreased [Not Recovered/Not Resolved]
  - Haematocrit abnormal [Unknown]
  - Neutrophil count decreased [Unknown]
  - White blood cell count decreased [Unknown]
  - Weight increased [Unknown]
